FAERS Safety Report 7783106-9 (Version None)
Quarter: 2011Q3

REPORT INFORMATION
  Report Type: 
  Country: None (occurrence: None)
  Receive Date: 20110928
  Receipt Date: 20110913
  Transmission Date: 20111222
  Serious: Yes (Other)
  Sender: FDA-Public Use
  Company Number: PHHY2011US62875

PATIENT
  Sex: Female
  Weight: 102.49 kg

DRUGS (1)
  1. GILENYA [Suspect]
     Indication: MULTIPLE SCLEROSIS
     Dosage: 0.5 MG, DAILY
     Route: 048
     Dates: start: 20110620

REACTIONS (12)
  - HYPERSOMNIA [None]
  - HEADACHE [None]
  - ORTHOSTATIC HYPOTENSION [None]
  - VISION BLURRED [None]
  - DIZZINESS [None]
  - CHEST PAIN [None]
  - DYSARTHRIA [None]
  - DYSPNOEA [None]
  - VISUAL IMPAIRMENT [None]
  - CONTUSION [None]
  - MUSCULAR WEAKNESS [None]
  - EYELID PTOSIS [None]
